FAERS Safety Report 25755521 (Version 1)
Quarter: 2025Q3

REPORT INFORMATION
  Report Type: Spontaneous
  Country: AU (occurrence: AU)
  Receive Date: 20250903
  Receipt Date: 20250903
  Transmission Date: 20251020
  Serious: Yes (Hospitalization)
  Sender: MYLAN
  Company Number: AU-MYLANLABS-2025M1074471

PATIENT
  Age: 84 Year
  Sex: Female

DRUGS (8)
  1. AMLODIPINE [Suspect]
     Active Substance: AMLODIPINE BESYLATE
     Indication: Essential hypertension
     Dosage: 10 MILLIGRAM, QD
  2. AMLODIPINE [Suspect]
     Active Substance: AMLODIPINE BESYLATE
     Dosage: 10 MILLIGRAM, QD
     Route: 065
  3. AMLODIPINE [Suspect]
     Active Substance: AMLODIPINE BESYLATE
     Dosage: 10 MILLIGRAM, QD
     Route: 065
  4. AMLODIPINE [Suspect]
     Active Substance: AMLODIPINE BESYLATE
     Dosage: 10 MILLIGRAM, QD
  5. IRBESARTAN [Suspect]
     Active Substance: IRBESARTAN
     Indication: Essential hypertension
  6. IRBESARTAN [Suspect]
     Active Substance: IRBESARTAN
     Route: 065
  7. IRBESARTAN [Suspect]
     Active Substance: IRBESARTAN
     Route: 065
  8. IRBESARTAN [Suspect]
     Active Substance: IRBESARTAN

REACTIONS (1)
  - Drug ineffective [Unknown]
